FAERS Safety Report 20491648 (Version 1)
Quarter: 2022Q1

REPORT INFORMATION
  Report Type: Spontaneous
  Country: US (occurrence: US)
  Receive Date: 20220218
  Receipt Date: 20220218
  Transmission Date: 20220423
  Serious: No
  Sender: FDA-Public Use
  Company Number: US-LEADIANT BIOSCIENCES INC-2021STPI000007

PATIENT
  Age: 3 Year
  Sex: Male

DRUGS (1)
  1. CARNITOR [Suspect]
     Active Substance: LEVOCARNITINE
     Indication: Product used for unknown indication
     Dosage: 1/2 TABLET, TID
     Route: 048

REACTIONS (2)
  - Seizure [Unknown]
  - Vomiting [Unknown]
